FAERS Safety Report 7476264-7 (Version None)
Quarter: 2011Q2

REPORT INFORMATION
  Report Type: 
  Country: None (occurrence: None)
  Receive Date: 20110512
  Receipt Date: 20110503
  Transmission Date: 20111010
  Serious: Yes (Hospitalization, Other)
  Sender: FDA-Public Use
  Company Number: CA-ELI_LILLY_AND_COMPANY-CA201105000528

PATIENT
  Sex: Female

DRUGS (5)
  1. ZYPREXA [Suspect]
     Indication: SCHIZOAFFECTIVE DISORDER
     Dosage: 20 MG, QD
     Dates: start: 19990901
  2. ZYPREXA [Suspect]
     Dosage: 10 MG, QD
  3. RISPERIDONE [Concomitant]
  4. EFFEXOR [Concomitant]
  5. ZYPREXA [Suspect]
     Dosage: 5 MG, QD

REACTIONS (15)
  - VERTEBRAL ARTERY STENOSIS [None]
  - TYPE 2 DIABETES MELLITUS [None]
  - WEIGHT INCREASED [None]
  - HEMIPARESIS [None]
  - HYPERTENSION [None]
  - SENSORY LOSS [None]
  - BALANCE DISORDER [None]
  - VENTRICULAR EXTRASYSTOLES [None]
  - RIGHT ATRIAL DILATATION [None]
  - SINUS TACHYCARDIA [None]
  - CELLULITIS [None]
  - CONJUNCTIVAL HAEMORRHAGE [None]
  - METABOLIC SYNDROME [None]
  - ISCHAEMIC STROKE [None]
  - HYPERCHOLESTEROLAEMIA [None]
